FAERS Safety Report 18617426 (Version 1)
Quarter: 2020Q4

REPORT INFORMATION
  Report Type: Spontaneous
  Country: US (occurrence: US)
  Receive Date: 20201214
  Receipt Date: 20201214
  Transmission Date: 20210114
  Serious: Yes (Other)
  Sender: FDA-Public Use
  Company Number: None

PATIENT
  Age: 68 Year

DRUGS (13)
  1. TRAMADOL HCL [Concomitant]
     Active Substance: TRAMADOL HYDROCHLORIDE
  2. CLONAZEPAM. [Concomitant]
     Active Substance: CLONAZEPAM
  3. OMEGA-3 ACIDS [Concomitant]
     Active Substance: OMEGA-3 FATTY ACIDS
  4. K2 PLUS D3 [Concomitant]
  5. ZOLEDRONIC ACID [Concomitant]
     Active Substance: ZOLEDRONIC ACID
  6. LETROZOLE. [Concomitant]
     Active Substance: LETROZOLE
  7. RA MILK THISTLE [Concomitant]
  8. CBD KINGS [Concomitant]
  9. KISQALI FEMARA CO-PACK [Suspect]
     Active Substance: LETROZOLE\RIBOCICLIB
     Indication: BREAST CANCER FEMALE
     Route: 048
     Dates: start: 20200130
  10. MULTIVITAMIN WOMENS [Concomitant]
  11. METRONIDAZOLE. [Concomitant]
     Active Substance: METRONIDAZOLE
  12. AMOXICILLIN. [Concomitant]
     Active Substance: AMOXICILLIN
  13. CALCIUM MAGNESIUM [Concomitant]
     Active Substance: CALCIUM\MAGNESIUM

REACTIONS (1)
  - Appendicitis perforated [None]
